FAERS Safety Report 24251691 (Version 2)
Quarter: 2024Q3

REPORT INFORMATION
  Report Type: Spontaneous
  Country: CA (occurrence: CA)
  Receive Date: 20240827
  Receipt Date: 20240902
  Transmission Date: 20241016
  Serious: Yes (Death, Life-Threatening, Hospitalization, Disabling, Congenital Anomaly, Other)
  Sender: Haleon PLC
  Company Number: CA-HALEON-2193158

PATIENT
  Age: 40 Year
  Sex: Female
  Weight: 96 kg

DRUGS (58)
  1. DICLOFENAC SODIUM [Suspect]
     Active Substance: DICLOFENAC\DICLOFENAC SODIUM
     Indication: Product used for unknown indication
     Route: 065
  2. DICLOFENAC SODIUM [Suspect]
     Active Substance: DICLOFENAC\DICLOFENAC SODIUM
     Route: 065
  3. DICLOFENAC SODIUM [Suspect]
     Active Substance: DICLOFENAC\DICLOFENAC SODIUM
     Route: 065
  4. CALTRATE WITH VITAMIN D [Suspect]
     Active Substance: CALCIUM CARBONATE\CHOLECALCIFEROL
     Indication: Product used for unknown indication
  5. DICLOFENAC [Suspect]
     Active Substance: DICLOFENAC
     Indication: Product used for unknown indication
     Route: 065
  6. COSENTYX [Suspect]
     Active Substance: SECUKINUMAB
     Indication: Rheumatoid arthritis
  7. COSENTYX [Suspect]
     Active Substance: SECUKINUMAB
     Indication: Psoriatic arthropathy
  8. ADALIMUMAB [Suspect]
     Active Substance: ADALIMUMAB
     Indication: Rheumatoid arthritis
     Route: 058
  9. ADALIMUMAB [Suspect]
     Active Substance: ADALIMUMAB
     Route: 058
  10. CANDESARTAN [Suspect]
     Active Substance: CANDESARTAN
     Indication: Migraine
     Route: 048
  11. OXYCODONE [Suspect]
     Active Substance: OXYCODONE
     Indication: Product used for unknown indication
     Route: 065
  12. PHENYLEPHRINE HYDROCHLORIDE [Suspect]
     Active Substance: PHENYLEPHRINE HYDROCHLORIDE
     Indication: Rheumatoid arthritis
     Route: 065
  13. ERELZI [Suspect]
     Active Substance: ETANERCEPT-SZZS
     Indication: Rheumatoid arthritis
  14. ERELZI [Suspect]
     Active Substance: ETANERCEPT-SZZS
     Route: 058
  15. LEFLUNOMIDE [Suspect]
     Active Substance: LEFLUNOMIDE
     Indication: Rheumatoid arthritis
     Route: 065
  16. LEFLUNOMIDE [Suspect]
     Active Substance: LEFLUNOMIDE
     Route: 048
  17. LEFLUNOMIDE [Suspect]
     Active Substance: LEFLUNOMIDE
     Route: 065
  18. LEFLUNOMIDE [Suspect]
     Active Substance: LEFLUNOMIDE
     Route: 065
  19. LEFLUNOMIDE [Suspect]
     Active Substance: LEFLUNOMIDE
     Route: 048
  20. METHOTREXATE [Suspect]
     Active Substance: METHOTREXATE
     Indication: Rheumatoid arthritis
     Route: 048
  21. METHOTREXATE [Suspect]
     Active Substance: METHOTREXATE
     Route: 048
  22. METHOTREXATE [Suspect]
     Active Substance: METHOTREXATE
     Route: 013
  23. METHOTREXATE [Suspect]
     Active Substance: METHOTREXATE
     Route: 048
  24. METHOTREXATE [Suspect]
     Active Substance: METHOTREXATE
     Route: 048
  25. METHOTREXATE [Suspect]
     Active Substance: METHOTREXATE
     Route: 048
  26. METHOTREXATE [Suspect]
     Active Substance: METHOTREXATE
     Route: 048
  27. METHOTREXATE [Suspect]
     Active Substance: METHOTREXATE
     Route: 048
  28. METHOTREXATE [Suspect]
     Active Substance: METHOTREXATE
     Route: 048
  29. METHOTREXATE [Suspect]
     Active Substance: METHOTREXATE
     Route: 013
  30. METHOTREXATE [Suspect]
     Active Substance: METHOTREXATE
     Route: 058
  31. METHOTREXATE [Suspect]
     Active Substance: METHOTREXATE
     Route: 048
  32. METHOTREXATE [Suspect]
     Active Substance: METHOTREXATE
     Route: 065
  33. METHOTREXATE [Suspect]
     Active Substance: METHOTREXATE
     Route: 065
  34. METHOTREXATE [Suspect]
     Active Substance: METHOTREXATE
     Route: 065
  35. METHOTREXATE [Suspect]
     Active Substance: METHOTREXATE
     Route: 016
  36. METHOTREXATE [Suspect]
     Active Substance: METHOTREXATE
  37. METHOTREXATE [Suspect]
     Active Substance: METHOTREXATE
     Route: 013
  38. METHOTREXATE [Suspect]
     Active Substance: METHOTREXATE
     Route: 048
  39. RITUXIMAB [Suspect]
     Active Substance: RITUXIMAB
     Indication: Rheumatoid arthritis
     Route: 040
  40. RITUXIMAB [Suspect]
     Active Substance: RITUXIMAB
     Route: 016
  41. RITUXIMAB [Suspect]
     Active Substance: RITUXIMAB
     Route: 065
  42. RITUXIMAB [Suspect]
     Active Substance: RITUXIMAB
     Route: 065
  43. RITUXIMAB [Suspect]
     Active Substance: RITUXIMAB
     Dosage: DURATION 5 MONTHS
     Route: 042
  44. RITUXIMAB [Suspect]
     Active Substance: RITUXIMAB
     Route: 065
  45. RITUXIMAB [Suspect]
     Active Substance: RITUXIMAB
     Route: 016
  46. RITUXIMAB [Suspect]
     Active Substance: RITUXIMAB
     Route: 016
  47. RITUXIMAB [Suspect]
     Active Substance: RITUXIMAB
     Route: 040
  48. RITUXIMAB [Suspect]
     Active Substance: RITUXIMAB
     Route: 058
  49. RITUXIMAB [Suspect]
     Active Substance: RITUXIMAB
     Route: 058
  50. RITUXIMAB [Suspect]
     Active Substance: RITUXIMAB
     Route: 065
  51. RITUXIMAB [Suspect]
     Active Substance: RITUXIMAB
     Route: 040
  52. RITUXIMAB [Suspect]
     Active Substance: RITUXIMAB
     Route: 040
  53. RITUXIMAB [Suspect]
     Active Substance: RITUXIMAB
     Route: 040
  54. TOPIRAMATE [Suspect]
     Active Substance: TOPIRAMATE
     Indication: Migraine
     Route: 065
  55. TOPIRAMATE [Suspect]
     Active Substance: TOPIRAMATE
     Route: 065
  56. TOPIRAMATE [Suspect]
     Active Substance: TOPIRAMATE
     Route: 065
  57. AIMOVIG [Suspect]
     Active Substance: ERENUMAB-AOOE
     Indication: Migraine
     Route: 065
  58. COSENTYX [Concomitant]
     Active Substance: SECUKINUMAB
     Indication: Product used for unknown indication

REACTIONS (34)
  - Wound infection [Fatal]
  - Intentional product use issue [Fatal]
  - Wheezing [Fatal]
  - Folliculitis [Fatal]
  - Pneumonia [Fatal]
  - Injury [Fatal]
  - Hepatitis [Fatal]
  - Dyspepsia [Fatal]
  - Grip strength decreased [Fatal]
  - Finger deformity [Fatal]
  - Musculoskeletal stiffness [Fatal]
  - Gastrooesophageal reflux disease [Fatal]
  - Bursitis [Fatal]
  - Coeliac disease [Fatal]
  - Off label use [Fatal]
  - Malaise [Fatal]
  - Gait inability [Fatal]
  - Liver function test increased [Fatal]
  - Insomnia [Fatal]
  - Muscular weakness [Fatal]
  - Gastrointestinal disorder [Fatal]
  - Adverse reaction [Fatal]
  - Product label confusion [Fatal]
  - Hypoaesthesia [Fatal]
  - Nail disorder [Fatal]
  - Pain in extremity [Fatal]
  - Abdominal distension [Fatal]
  - Back injury [Fatal]
  - Fall [Fatal]
  - Mobility decreased [Fatal]
  - Weight increased [Fatal]
  - Neck pain [Fatal]
  - Headache [Fatal]
  - Condition aggravated [Fatal]
